FAERS Safety Report 9089371 (Version 1)
Quarter: 2013Q1

REPORT INFORMATION
  Report Type: Report from Study
  Country: US (occurrence: US)
  Receive Date: 20130218
  Receipt Date: 20130218
  Transmission Date: 20140127
  Serious: No
  Sender: FDA-Public Use
  Company Number: US-ABBOTT-12P-163-0933351-00

PATIENT
  Sex: Male

DRUGS (5)
  1. SIMCOR 1000MG/40MG [Suspect]
     Indication: CAROTID ARTERIOSCLEROSIS
     Dosage: ^2000/40MG^ AT BEDTIME
     Dates: start: 2009, end: 201202
  2. ASA [Concomitant]
     Indication: PRODUCT USED FOR UNKNOWN INDICATION
     Dosage: 325MG AT BEDTIME
     Route: 048
  3. MULTIVITAMIN [Concomitant]
     Indication: VITAMIN SUPPLEMENTATION
     Dosage: IN THE MORNING
  4. VITAMIN B12 [Concomitant]
     Indication: PRODUCT USED FOR UNKNOWN INDICATION
  5. UNKNOWN MEDICATION(S) [Concomitant]
     Indication: PRODUCT USED FOR UNKNOWN INDICATION

REACTIONS (6)
  - Flushing [Recovered/Resolved]
  - Erythema [Recovered/Resolved]
  - Paraesthesia [Recovered/Resolved]
  - Glucose tolerance impaired [Unknown]
  - Blood glucose increased [Unknown]
  - Gout [Recovered/Resolved]
